FAERS Safety Report 24099378 (Version 1)
Quarter: 2024Q3

REPORT INFORMATION
  Report Type: Spontaneous
  Country: US (occurrence: US)
  Receive Date: 20240716
  Receipt Date: 20240716
  Transmission Date: 20241017
  Serious: No
  Sender: NOVO NORDISK
  Company Number: US-NOVOPROD-1173746

PATIENT
  Sex: Female

DRUGS (2)
  1. OZEMPIC [Suspect]
     Active Substance: SEMAGLUTIDE
     Indication: Weight control
     Dosage: 1MG
     Route: 058
     Dates: start: 20230601
  2. NovoFine Plus (32G) [Concomitant]
     Indication: Device therapy
     Dosage: UNK
     Route: 058
     Dates: start: 20230601

REACTIONS (3)
  - Face lift [Unknown]
  - Increased appetite [Unknown]
  - Product use in unapproved indication [Unknown]
